FAERS Safety Report 4372564-8 (Version None)
Quarter: 2004Q2

REPORT INFORMATION
  Report Type: 
  Country: None (occurrence: None)
  Receive Date: 20040526
  Receipt Date: 20040517
  Transmission Date: 20050107
  Serious: Yes (Death)
  Sender: FDA-Public Use
  Company Number: KII-1998-0001390

PATIENT
  Sex: Male

DRUGS (3)
  1. OXYCONTIN [Suspect]
     Indication: PAIN
     Dosage: 180 MG, BID
  2. OXYIR (OXYCODONE  HYDROCHLORIDE) CR TABLET [Suspect]
     Indication: PAIN
     Dosage: 180 MG, BID
  3. OXYIR (OXYCODONE) [Suspect]
     Indication: PAIN

REACTIONS (1)
  - DEATH [None]
